FAERS Safety Report 7549772-8 (Version None)
Quarter: 2011Q2

REPORT INFORMATION
  Report Type: 
  Country: None (occurrence: None)
  Receive Date: 20110615
  Receipt Date: 20110609
  Transmission Date: 20111010
  Serious: Yes (Other)
  Sender: FDA-Public Use
  Company Number: CA-PFIZER INC-2011004940

PATIENT
  Age: 71 Year
  Sex: Male
  Weight: 61.2 kg

DRUGS (17)
  1. INSULIN [Concomitant]
     Dosage: 8 UNITS AT SUPPER AND 20 UNITS IN THE MORNING
     Dates: start: 20101217, end: 20110116
  2. ZIPRASIDONE HYDROCHLORIDE [Suspect]
     Indication: DEPRESSION
     Dosage: 40 MG, 1X AT SUPPER
     Dates: start: 20101214
  3. ZIPRASIDONE HYDROCHLORIDE [Suspect]
     Dosage: 60MG WITH SUPPER
     Dates: start: 20110328
  4. ZIPRASIDONE HYDROCHLORIDE [Suspect]
     Dosage: 20MG WITH BREAKFAST AND 20MG WITH SUPPER
  5. INSULIN [Concomitant]
     Indication: BLOOD GLUCOSE ABNORMAL
     Dosage: 12 UNITS AT SUPPER AND 16 UNITS AT BREAKFAST
     Dates: start: 20100407, end: 20101216
  6. INSULIN [Concomitant]
     Dosage: 8 UNITS AT SUPPER AND 16 UNITS IN THE MORNING
     Dates: start: 20110127
  7. METFORMIN [Concomitant]
     Indication: DIABETES MELLITUS
     Dosage: 1000 MG (2X500MG), 2X/DAY
  8. LOPID [Concomitant]
     Indication: BLOOD CHOLESTEROL
     Dosage: 300 MG, 2X/DAY
  9. CRESTOR [Concomitant]
     Indication: RENAL DISORDER
     Dosage: 10 MG, 1X/DAY (AT BEDTIME)
  10. FERROUS SULFATE [Concomitant]
     Indication: IRON DEFICIENCY
     Dosage: 300 MG, 1X/DAY (AT DINNER)
  11. VITAMIN B-12 [Concomitant]
     Indication: BLOOD COUNT ABNORMAL
     Dosage: 500 UG, 1X/DAY (AT DINNER)
  12. SEROQUEL [Concomitant]
     Indication: DEPRESSION
     Dosage: 50 MG (2X25MG), 2X/DAY
     Dates: end: 20101201
  13. FOSINOPRIL [Concomitant]
     Dosage: 20 MG, 1X/DAY (IN THE MORNING)
  14. ZIPRASIDONE HYDROCHLORIDE [Suspect]
     Dosage: 40MG WITH BREAKFAST AND 20MG WITH SUPPER
  15. ZIPRASIDONE HYDROCHLORIDE [Suspect]
     Dosage: 20MG WITH BREAKFAST AND 40MG WITH SUPPER
  16. ZOLOFT [Concomitant]
     Indication: DEPRESSION
     Dosage: 50 MG IN THE MORNING AND 50MG IN EVENING
     Dates: start: 20090101
  17. INSULIN [Concomitant]
     Dosage: 8 UNITS AT SUPPER AND 18 UNITS IN THE MORNING
     Dates: start: 20110117, end: 20110126

REACTIONS (22)
  - BLOOD GLUCOSE INCREASED [None]
  - FLATULENCE [None]
  - HYPOGLYCAEMIA [None]
  - JOINT STIFFNESS [None]
  - ABDOMINAL DISTENSION [None]
  - AGITATION [None]
  - MEMORY IMPAIRMENT [None]
  - IRRITABILITY [None]
  - CHOKING [None]
  - TREMOR [None]
  - FEELING OF RELAXATION [None]
  - PAIN [None]
  - FEELINGS OF WORTHLESSNESS [None]
  - PSYCHOMOTOR HYPERACTIVITY [None]
  - GASTRIC PH DECREASED [None]
  - DIZZINESS [None]
  - TACHYPHRENIA [None]
  - FATIGUE [None]
  - DRUG INTOLERANCE [None]
  - DISTURBANCE IN ATTENTION [None]
  - INSOMNIA [None]
  - ANXIETY [None]
